FAERS Safety Report 19766443 (Version 4)
Quarter: 2021Q4

REPORT INFORMATION
  Report Type: Report from Study
  Country: CA (occurrence: CA)
  Receive Date: 20210830
  Receipt Date: 20211209
  Transmission Date: 20220303
  Serious: Yes (Other)
  Sender: FDA-Public Use
  Company Number: CA-UCBSA-2021039802

PATIENT
  Sex: Female

DRUGS (2)
  1. CERTOLIZUMAB PEGOL [Suspect]
     Active Substance: CERTOLIZUMAB PEGOL
     Indication: Psoriatic arthropathy
     Dosage: 400 MILLIGRAM, EV 2 WEEKS(QOW)
     Route: 058
     Dates: start: 20201025, end: 20210815
  2. CERTOLIZUMAB PEGOL [Suspect]
     Active Substance: CERTOLIZUMAB PEGOL
     Indication: Psoriasis
     Dosage: UNK
     Route: 058
     Dates: start: 2021, end: 20211015

REACTIONS (2)
  - Colitis ulcerative [Not Recovered/Not Resolved]
  - Surgery [Recovered/Resolved]

NARRATIVE: CASE EVENT DATE: 20210101
